FAERS Safety Report 19019213 (Version 2)
Quarter: 2021Q3

REPORT INFORMATION
  Report Type: Report from Study
  Country: US (occurrence: US)
  Receive Date: 20210316
  Receipt Date: 20210722
  Transmission Date: 20211014
  Serious: No
  Sender: FDA-Public Use
  Company Number: NVSC2021US059960

PATIENT
  Age: 44 Year
  Sex: Male

DRUGS (1)
  1. ENTRESTO [Suspect]
     Active Substance: SACUBITRIL\VALSARTAN
     Indication: CARDIAC FAILURE
     Dosage: 100 MG (49/51 MG), BID
     Route: 048
     Dates: start: 20210126

REACTIONS (2)
  - Cough [Unknown]
  - Throat clearing [Unknown]

NARRATIVE: CASE EVENT DATE: 20210311
